FAERS Safety Report 7937311-9 (Version None)
Quarter: 2011Q4

REPORT INFORMATION
  Report Type: 
  Country: None (occurrence: None)
  Receive Date: 20111123
  Receipt Date: 20111118
  Transmission Date: 20120403
  Serious: Yes (Hospitalization)
  Sender: FDA-Public Use
  Company Number: US-B.I. PHARMACEUTICALS,INC./RIDGEFIELD-2011-BP-23938BP

PATIENT
  Age: 59 Year
  Sex: Male
  Weight: 79.09 kg

DRUGS (6)
  1. KLOR-CON [Concomitant]
     Dosage: 10 MCG
  2. LIPITOR [Concomitant]
  3. LASIX [Concomitant]
     Dosage: 20 MG
  4. SOTALOL HCL [Concomitant]
  5. PRADAXA [Suspect]
     Route: 048
     Dates: end: 20110222
  6. LEVAQUIN [Concomitant]
     Route: 048

REACTIONS (2)
  - ISCHAEMIC STROKE [None]
  - HAEMORRHAGIC TRANSFORMATION STROKE [None]
